FAERS Safety Report 24046547 (Version 2)
Quarter: 2024Q3

REPORT INFORMATION
  Report Type: Spontaneous
  Country: US (occurrence: US)
  Receive Date: 20240703
  Receipt Date: 20240727
  Transmission Date: 20241017
  Serious: No
  Sender: SANOFI AVENTIS
  Company Number: US-SA-2024SA073956

PATIENT
  Age: 68 Year
  Sex: Female

DRUGS (2)
  1. REZUROCK [Suspect]
     Active Substance: BELUMOSUDIL
     Indication: Myelofibrosis
     Dosage: 200 MG, QD
     Route: 048
  2. REZUROCK [Suspect]
     Active Substance: BELUMOSUDIL
     Dosage: 200MG DAILY
     Route: 048
     Dates: start: 20230526

REACTIONS (5)
  - Oral discomfort [Unknown]
  - Throat irritation [Unknown]
  - Depression [Unknown]
  - Blood cholesterol abnormal [Unknown]
  - Product use in unapproved indication [Unknown]
